FAERS Safety Report 9279970 (Version 2)
Quarter: 2013Q3

REPORT INFORMATION
  Report Type: Spontaneous
  Country: US (occurrence: US)
  Receive Date: 20130509
  Receipt Date: 20130830
  Transmission Date: 20140515
  Serious: Yes (Other)
  Sender: FDA-Public Use
  Company Number: US-AMGEN-USASP2013031455

PATIENT
  Sex: Female
  Weight: 77.1 kg

DRUGS (1)
  1. PROLIA [Suspect]
     Indication: OSTEOPOROSIS POSTMENOPAUSAL
     Dosage: 60 MG, Q6MO
     Route: 030
     Dates: start: 20130625

REACTIONS (5)
  - Transient ischaemic attack [Unknown]
  - Muscle spasms [Recovered/Resolved]
  - Gingival swelling [Unknown]
  - Arthralgia [Unknown]
  - Pain in extremity [Recovered/Resolved]
